FAERS Safety Report 16883507 (Version 1)
Quarter: 2019Q4

REPORT INFORMATION
  Report Type: Spontaneous
  Country: PT (occurrence: PT)
  Receive Date: 20191004
  Receipt Date: 20191004
  Transmission Date: 20200122
  Serious: Yes (Other)
  Sender: FDA-Public Use
  Company Number: PT-TEVA-2019-PT-1115835

PATIENT
  Age: 78 Year
  Sex: Female

DRUGS (6)
  1. MIRTAZAPINE. [Suspect]
     Active Substance: MIRTAZAPINE
     Dosage: SINGLE ADMINISTRATION 15 MG 1 DAYS
     Route: 048
     Dates: start: 2019, end: 2019
  2. CANDESARTAN. [Concomitant]
     Active Substance: CANDESARTAN
  3. INDERAL [Concomitant]
     Active Substance: PROPRANOLOL HYDROCHLORIDE
     Dosage: 1 DAYS 10 MG
  4. WARFARIN [Concomitant]
     Active Substance: WARFARIN
  5. AMISULPRIDE [Concomitant]
     Active Substance: AMISULPRIDE
  6. OMEPRAZOLE. [Concomitant]
     Active Substance: OMEPRAZOLE

REACTIONS (3)
  - Tongue disorder [Recovered/Resolved]
  - Lip disorder [Recovered/Resolved]
  - Choking sensation [Recovered/Resolved]

NARRATIVE: CASE EVENT DATE: 2019
